FAERS Safety Report 21860822 (Version 1)
Quarter: 2023Q1

REPORT INFORMATION
  Report Type: Spontaneous
  Country: US (occurrence: None)
  Receive Date: 20230113
  Receipt Date: 20230113
  Transmission Date: 20230418
  Serious: Yes (Hospitalization)
  Sender: FDA-Public Use
  Company Number: None

PATIENT
  Sex: Male
  Weight: 64 kg

DRUGS (25)
  1. MAVYRET [Suspect]
     Active Substance: GLECAPREVIR\PIBRENTASVIR
     Indication: Hepatitis C
     Dosage: 3 TABLET ONCE DAILY BY MOUTH
     Route: 048
     Dates: start: 20191222, end: 20200315
  2. AMIODARONE [Concomitant]
     Active Substance: AMIODARONE
  3. ASPIRIN [Concomitant]
     Active Substance: ASPIRIN
  4. CALCIUM CITRATE\CHOLECALCIFEROL [Concomitant]
     Active Substance: CALCIUM CITRATE\CHOLECALCIFEROL
  5. DAPSONE [Concomitant]
     Active Substance: DAPSONE
  6. DOCUSATE SODIUM [Concomitant]
     Active Substance: DOCUSATE SODIUM
  7. LEXAPRO [Concomitant]
     Active Substance: ESCITALOPRAM OXALATE
  8. FERROUS SULFATE [Concomitant]
     Active Substance: FERROUS SULFATE
  9. FOLIC ACID [Concomitant]
     Active Substance: FOLIC ACID
  10. FUROSEMIDE [Concomitant]
     Active Substance: FUROSEMIDE
  11. INSULIN ASPART [Concomitant]
     Active Substance: INSULIN ASPART
  12. INSULIN GLARGINE [Concomitant]
     Active Substance: INSULIN GLARGINE
  13. MAGNESIUM OXIDE [Concomitant]
     Active Substance: MAGNESIUM OXIDE
  14. MYCOPHENOLATE MOFETIL [Concomitant]
     Active Substance: MYCOPHENOLATE MOFETIL
  15. NYSTATIN [Concomitant]
  16. ONDANSETRON [Concomitant]
     Active Substance: ONDANSETRON
  17. PANTOPRAZOLE [Concomitant]
     Active Substance: PANTOPRAZOLE
  18. MIRALAX [Concomitant]
     Active Substance: POLYETHYLENE GLYCOL 3350
  19. PRAVASTATIN [Concomitant]
     Active Substance: PRAVASTATIN
  20. PREDNISONE [Concomitant]
     Active Substance: PREDNISONE
  21. TACROLIMUS [Concomitant]
     Active Substance: TACROLIMUS
  22. TAMSULOSIN [Concomitant]
     Active Substance: TAMSULOSIN
  23. TRAMADOL [Concomitant]
     Active Substance: TRAMADOL
  24. VALGANCICLOVIR [Concomitant]
     Active Substance: VALGANCICLOVIR
  25. WARFARIN [Concomitant]
     Active Substance: WARFARIN

REACTIONS (5)
  - Enterobacter bacteraemia [None]
  - Clostridium test positive [None]
  - Tubulointerstitial nephritis [None]
  - Mood altered [None]
  - Feeling abnormal [None]

NARRATIVE: CASE EVENT DATE: 20200104
